FAERS Safety Report 4348466-X (Version None)
Quarter: 2004Q2

REPORT INFORMATION
  Report Type: 
  Country: None (occurrence: None)
  Receive Date: 20040423
  Receipt Date: 20040413
  Transmission Date: 20050107
  Serious: Yes (Congenital Anomaly)
  Sender: FDA-Public Use
  Company Number: S04-USA-02068-02

PATIENT

DRUGS (1)
  1. CELEXA [Suspect]
     Indication: DEPRESSION
     Dosage: 30 MG QD TRANSPLACENTAL
     Route: 064

REACTIONS (5)
  - CONGENITAL ANOMALY OF INNER EAR [None]
  - DEAFNESS CONGENITAL [None]
  - MATERNAL DRUGS AFFECTING FOETUS [None]
  - SPINAL DISORDER [None]
  - VASCULAR ANOMALY [None]
